FAERS Safety Report 16408625 (Version 1)
Quarter: 2019Q2

REPORT INFORMATION
  Report Type: Spontaneous
  Country: IT (occurrence: IT)
  Receive Date: 20190610
  Receipt Date: 20190610
  Transmission Date: 20190711
  Serious: Yes (Death, Life-Threatening, Hospitalization, Other)
  Sender: FDA-Public Use
  Company Number: IT-AMGEN-ITASP2019089306

PATIENT

DRUGS (2)
  1. PEGFILGRASTIM [Suspect]
     Active Substance: PEGFILGRASTIM
     Indication: HAEMATOPOIETIC STEM CELL MOBILISATION
     Dosage: UNK
     Route: 065
  2. FILGRASTIM [Suspect]
     Active Substance: FILGRASTIM
     Indication: HAEMATOPOIETIC STEM CELL MOBILISATION
     Dosage: UNK UNK, QD (5-10 MU/KG/QD)
     Route: 065

REACTIONS (15)
  - Meningitis bacterial [Fatal]
  - Neutropenia [Recovered/Resolved]
  - Gastroenteritis clostridial [Recovered/Resolved]
  - Off label use [Unknown]
  - Urinary tract infection [Recovered/Resolved]
  - Disease recurrence [Fatal]
  - Disease progression [Fatal]
  - Thrombotic thrombocytopenic purpura [Fatal]
  - Venoocclusive disease [Fatal]
  - Mucosal inflammation [Recovered/Resolved]
  - Pneumonia [Recovered/Resolved]
  - Cardiac failure [Fatal]
  - Toxicity to various agents [Recovered/Resolved]
  - Sepsis [Recovered/Resolved]
  - Pyrexia [Recovered/Resolved]
